FAERS Safety Report 5051754-5 (Version None)
Quarter: 2006Q3

REPORT INFORMATION
  Report Type: 
  Country: None (occurrence: None)
  Receive Date: 20060713
  Receipt Date: 20060713
  Transmission Date: 20061208
  Serious: Yes (Hospitalization)
  Sender: FDA-Public Use
  Company Number: None

PATIENT
  Sex: Male

DRUGS (1)
  1. OXANDRIN [Suspect]
     Indication: WEIGHT DECREASED
     Dosage: 20 MG BID X 12 WKS ORAL
     Route: 048
     Dates: start: 20060510

REACTIONS (7)
  - DYSURIA [None]
  - FALL [None]
  - HEAD INJURY [None]
  - PAIN [None]
  - PNEUMOTHORAX [None]
  - RIB FRACTURE [None]
  - URINARY RETENTION [None]
